FAERS Safety Report 7771768-1 (Version None)
Quarter: 2011Q3

REPORT INFORMATION
  Report Type: 
  Country: None (occurrence: None)
  Receive Date: 20110920
  Receipt Date: 20110905
  Transmission Date: 20111222
  Serious: Yes (Hospitalization, Other)
  Sender: FDA-Public Use
  Company Number: AUR-APL-2011-04464

PATIENT
  Age: 90 Year
  Sex: Male

DRUGS (6)
  1. AMLODIPINE BESYLATE [Concomitant]
  2. METOPROLOL TARTRATE [Suspect]
     Indication: CARDIAC FAILURE
     Dosage: (50 MG),
  3. PAROXETINE HCL [Suspect]
     Indication: DEPRESSION
     Dosage: 20 MG (20 MG, EACH MORNING),
  4. LISINOPRIL [Concomitant]
  5. TORSEMIDE [Concomitant]
  6. ACETYLSALICYLIC ACID SRT [Concomitant]

REACTIONS (5)
  - DRUG LEVEL INCREASED [None]
  - BRADYCARDIA [None]
  - SLOW RESPONSE TO STIMULI [None]
  - CARDIAC FAILURE ACUTE [None]
  - METABOLIC DISORDER [None]
